FAERS Safety Report 25444956 (Version 1)
Quarter: 2025Q2

REPORT INFORMATION
  Report Type: Spontaneous
  Country: ES (occurrence: ES)
  Receive Date: 20250617
  Receipt Date: 20250617
  Transmission Date: 20250716
  Serious: Yes (Hospitalization, Other)
  Sender: PURACAP PHARMACEUTICAL LLC
  Company Number: ES-PURACAP-ES-2025EPCLIT00738

PATIENT
  Age: 81 Year
  Sex: Female

DRUGS (6)
  1. MELOXICAM [Suspect]
     Active Substance: MELOXICAM
     Indication: Wound infection
     Route: 065
  2. MELOXICAM [Suspect]
     Active Substance: MELOXICAM
     Indication: Wound infection
  3. AMOXICILLIN\CLAVULANIC ACID [Suspect]
     Active Substance: AMOXICILLIN\CLAVULANIC ACID
     Indication: Wound infection
     Route: 065
  4. AMOXICILLIN\CLAVULANIC ACID [Suspect]
     Active Substance: AMOXICILLIN\CLAVULANIC ACID
     Indication: Wound infection
  5. QUINAPRIL [Concomitant]
     Active Substance: QUINAPRIL
     Indication: Product used for unknown indication
     Route: 065
  6. AMILORIDE [Concomitant]
     Active Substance: AMILORIDE
     Indication: Product used for unknown indication
     Route: 065

REACTIONS (3)
  - Cholestatic liver injury [Recovered/Resolved]
  - Drug reaction with eosinophilia and systemic symptoms [Recovered/Resolved]
  - Product use in unapproved indication [Unknown]
